FAERS Safety Report 21474493 (Version 1)
Quarter: 2022Q4

REPORT INFORMATION
  Report Type: Spontaneous
  Country: PL (occurrence: PL)
  Receive Date: 20221018
  Receipt Date: 20221018
  Transmission Date: 20230113
  Serious: Yes (Other)
  Sender: FDA-Public Use
  Company Number: PL-BIOGEN-2022BI01162633

PATIENT
  Age: 44 Year
  Sex: Female

DRUGS (1)
  1. TYSABRI [Suspect]
     Active Substance: NATALIZUMAB
     Indication: Multiple sclerosis
     Route: 050
     Dates: start: 202006

REACTIONS (13)
  - Paraparesis [Unknown]
  - Extensor plantar response [Unknown]
  - Hypoacusis [Unknown]
  - Prescribed underdose [Unknown]
  - Nystagmus [Unknown]
  - Dysarthria [Unknown]
  - Hyperreflexia [Unknown]
  - Tremor [Unknown]
  - Hypoaesthesia [Unknown]
  - Vibration test abnormal [Unknown]
  - Ataxia [Unknown]
  - Neurogenic bladder [Unknown]
  - Vibration test abnormal [Unknown]
